FAERS Safety Report 5880317-4 (Version None)
Quarter: 2008Q3

REPORT INFORMATION
  Report Type: 
  Country: None (occurrence: None)
  Receive Date: 20080912
  Receipt Date: 20080904
  Transmission Date: 20090109
  Serious: Yes (Other)
  Sender: FDA-Public Use
  Company Number: JP-PFIZER INC-2008074623

PATIENT

DRUGS (2)
  1. VIAGRA [Suspect]
     Route: 048
  2. DRUG, UNSPECIFIED [Concomitant]

REACTIONS (2)
  - ATRIOVENTRICULAR BLOCK [None]
  - BRADYCARDIA [None]
